FAERS Safety Report 10149792 (Version 1)
Quarter: 2014Q2

REPORT INFORMATION
  Report Type: Spontaneous
  Country: US (occurrence: None)
  Receive Date: 20140501
  Receipt Date: 20140501
  Transmission Date: 20141212
  Serious: Yes (Life-Threatening, Hospitalization, Other)
  Sender: FDA-Public Use
  Company Number: None

PATIENT
  Age: 36 Year
  Sex: Female

DRUGS (1)
  1. VIVITROL [Suspect]
     Indication: DRUG DEPENDENCE
     Dosage: INJECTION 3X DAY
     Dates: start: 201203, end: 201303

REACTIONS (9)
  - Anaphylactic shock [None]
  - Heart rate irregular [None]
  - Swelling face [None]
  - Eye swelling [None]
  - Pharyngeal oedema [None]
  - Electrocardiogram abnormal [None]
  - Blood pressure increased [None]
  - Blood potassium decreased [None]
  - Pancreatitis [None]
